FAERS Safety Report 14448134 (Version 1)
Quarter: 2018Q1

REPORT INFORMATION
  Report Type: Spontaneous
  Country: US (occurrence: US)
  Receive Date: 20180126
  Receipt Date: 20180126
  Transmission Date: 20180509
  Serious: Yes (Death)
  Sender: FDA-Public Use
  Company Number: US-VIFOR (INTERNATIONAL) INC.-VIT-2018-00774

PATIENT
  Sex: Male

DRUGS (13)
  1. FLORICAL [Concomitant]
     Active Substance: DIETARY SUPPLEMENT
  2. SIMVASTATIN. [Concomitant]
     Active Substance: SIMVASTATIN
  3. CLOZAPINE. [Concomitant]
     Active Substance: CLOZAPINE
  4. VELTASSA [Suspect]
     Active Substance: PATIROMER
     Indication: HYPERKALAEMIA
     Route: 048
     Dates: start: 20170608
  5. ONDANSETRON HYDROCHLORIDE. [Concomitant]
     Active Substance: ONDANSETRON HYDROCHLORIDE
  6. VIAGRA [Concomitant]
     Active Substance: SILDENAFIL CITRATE
  7. ATENOLOL. [Concomitant]
     Active Substance: ATENOLOL
  8. VITAMINS NOS [Concomitant]
     Active Substance: VITAMINS
  9. CLONAZEPAM. [Concomitant]
     Active Substance: CLONAZEPAM
  10. SENNOSIDE A+B [Concomitant]
     Active Substance: SENNOSIDES A AND B
  11. SODIUM BICARBONATE. [Concomitant]
     Active Substance: SODIUM BICARBONATE
  12. TYLENOL [Concomitant]
     Active Substance: ACETAMINOPHEN
  13. VALPROIC ACID. [Concomitant]
     Active Substance: VALPROIC ACID

REACTIONS (1)
  - Death [Fatal]
